FAERS Safety Report 18330977 (Version 4)
Quarter: 2021Q1

REPORT INFORMATION
  Report Type: Spontaneous
  Country: JP (occurrence: JP)
  Receive Date: 20200930
  Receipt Date: 20210322
  Transmission Date: 20210419
  Serious: Yes (Other)
  Sender: FDA-Public Use
  Company Number: JP-UCBSA-2020038808

PATIENT
  Age: 12 Year
  Sex: Male

DRUGS (11)
  1. KIPRES [Concomitant]
     Active Substance: MONTELUKAST SODIUM
     Indication: ASTHMA
     Dosage: 5 MILLIGRAM/DAY
     Route: 048
  2. XYZAL [Suspect]
     Active Substance: LEVOCETIRIZINE DIHYDROCHLORIDE
     Indication: ALLERGY TO PLANTS
     Dosage: 5 MILLIGRAM, ONCE DAILY (QD)
     Route: 048
     Dates: start: 20180606
  3. FLUTICASONE FUROATE [Suspect]
     Active Substance: FLUTICASONE FUROATE
     Indication: RHINITIS ALLERGIC
     Dosage: NASAL SPRAY DEVICE
  4. SERETIDE [Suspect]
     Active Substance: FLUTICASONE PROPIONATE\SALMETEROL XINAFOATE
     Indication: ASTHMA
     Dosage: 250 MICROGRAM, ONCE DAILY (QD), AEROSOL
     Dates: start: 20180702, end: 20181003
  5. SERETIDE [Suspect]
     Active Substance: FLUTICASONE PROPIONATE\SALMETEROL XINAFOATE
     Dosage: AEROSOL 50 AT 3 INHALATIONS IN THE MORNING AND AEROSOL 250 AT 1 INHALATION AT NIGHT
     Dates: start: 20181004, end: 20181226
  6. ALLERMIST [Suspect]
     Active Substance: FLUTICASONE FUROATE
     Indication: RHINITIS ALLERGIC
     Dosage: ONE SPRAY IN EACH NOSTRIL, ONCE DAILY (QD)
     Route: 045
  7. CEDARCURE [Suspect]
     Active Substance: CRYPTOMERIA JAPONICA POLLEN
     Dosage: UNK
     Route: 060
  8. CEDARCURE [Suspect]
     Active Substance: CRYPTOMERIA JAPONICA POLLEN
     Dosage: UNK
     Route: 060
  9. FLUTICASONE PROPIONATE;SALMETEROL [Suspect]
     Active Substance: FLUTICASONE PROPIONATE\SALMETEROL XINAFOATE
     Indication: ASTHMA
     Dosage: 250/50 ?G , HFA METERED DOSE INHALER DEVICE
  10. KIPRES [Concomitant]
     Active Substance: MONTELUKAST SODIUM
     Indication: RHINITIS ALLERGIC
  11. CEDARCURE [Suspect]
     Active Substance: CRYPTOMERIA JAPONICA POLLEN
     Indication: ALLERGY TO PLANTS
     Dosage: 2000 JAU (JAPANESE ALLERGY UNITS
     Route: 060

REACTIONS (8)
  - Food allergy [Unknown]
  - Overdose [Unknown]
  - Product use issue [Unknown]
  - Asthma [Recovering/Resolving]
  - Throat irritation [Recovering/Resolving]
  - Dyspnoea [Unknown]
  - Drug hypersensitivity [Unknown]
  - Therapeutic response decreased [Unknown]

NARRATIVE: CASE EVENT DATE: 20180606
